FAERS Safety Report 14405195 (Version 1)
Quarter: 2018Q1

REPORT INFORMATION
  Report Type: Spontaneous
  Country: PL (occurrence: PL)
  Receive Date: 20180118
  Receipt Date: 20180118
  Transmission Date: 20180509
  Serious: Yes (Death)
  Sender: FDA-Public Use
  Company Number: PL-ABBVIE-18K-129-2226720-00

PATIENT
  Age: 59 Year
  Sex: Male

DRUGS (2)
  1. HUMIRA [Suspect]
     Active Substance: ADALIMUMAB
     Indication: RHEUMATOID ARTHRITIS
     Route: 058
     Dates: start: 20171102
  2. CIMZIA [Suspect]
     Active Substance: CERTOLIZUMAB PEGOL
     Indication: RHEUMATOID ARTHRITIS
     Route: 058
     Dates: start: 20170713, end: 20171019

REACTIONS (4)
  - Respiratory failure [Fatal]
  - Cardiac failure [Fatal]
  - Hepatitis B [Unknown]
  - Pneumonia escherichia [Fatal]

NARRATIVE: CASE EVENT DATE: 201712
